FAERS Safety Report 9403125 (Version 2)
Quarter: 2013Q4

REPORT INFORMATION
  Report Type: Spontaneous
  Country: US (occurrence: US)
  Receive Date: 20130716
  Receipt Date: 20131015
  Transmission Date: 20140711
  Serious: Yes (Death)
  Sender: FDA-Public Use
  Company Number: US-GLAXOSMITHKLINE-A1033607A

PATIENT
  Age: 47 Year
  Sex: Female

DRUGS (1)
  1. TYKERB [Suspect]
     Indication: BREAST CANCER
     Dosage: 250MG UNKNOWN
     Route: 065

REACTIONS (4)
  - Breast cancer [Fatal]
  - Metastases to central nervous system [Fatal]
  - Metastases to liver [Fatal]
  - Drug ineffective [Unknown]
